FAERS Safety Report 4983512-1 (Version None)
Quarter: 2006Q2

REPORT INFORMATION
  Report Type: 
  Country: None (occurrence: None)
  Receive Date: 20060426
  Receipt Date: 20051122
  Transmission Date: 20061013
  Serious: Yes (Hospitalization, Other)
  Sender: FDA-Public Use
  Company Number: US-MERCK-0511USA03843

PATIENT
  Age: 55 Year
  Sex: Female
  Weight: 45 kg

DRUGS (4)
  1. VASOTEC [Concomitant]
     Route: 048
     Dates: start: 19990601, end: 20031001
  2. CELEXA [Concomitant]
     Route: 065
     Dates: start: 19990101, end: 20040101
  3. VIOXX [Suspect]
     Indication: ARTHRITIS
     Route: 048
     Dates: start: 20021101, end: 20040101
  4. PREMARIN [Concomitant]
     Route: 065
     Dates: start: 19800101, end: 20031001

REACTIONS (6)
  - CEREBRAL INFARCTION [None]
  - CEREBROVASCULAR ACCIDENT [None]
  - DEHYDRATION [None]
  - MIGRAINE [None]
  - PANCREATITIS [None]
  - TRANSIENT ISCHAEMIC ATTACK [None]
